FAERS Safety Report 21191951 (Version 2)
Quarter: 2022Q3

REPORT INFORMATION
  Report Type: Spontaneous
  Country: US (occurrence: None)
  Receive Date: 20220809
  Receipt Date: 20220812
  Transmission Date: 20221027
  Serious: Yes (Hospitalization, Other)
  Sender: FDA-Public Use
  Company Number: 2022A273994

PATIENT
  Age: 28368 Day
  Sex: Female

DRUGS (1)
  1. BUDESONIDE\FORMOTEROL\GLYCOPYRRONIUM [Suspect]
     Active Substance: BUDESONIDE\FORMOTEROL\GLYCOPYRRONIUM
     Dosage: 160/9/4.8 UG, TWO TIMES A DAY
     Route: 055
     Dates: start: 2022

REACTIONS (14)
  - Cerebrovascular accident [Recovering/Resolving]
  - Bronchiectasis [Not Recovered/Not Resolved]
  - Pneumonia aspiration [Not Recovered/Not Resolved]
  - Mitral valve prolapse [Unknown]
  - Gastrointestinal hypomotility [Not Recovered/Not Resolved]
  - Dysphagia [Not Recovered/Not Resolved]
  - Weight decreased [Unknown]
  - Inflammation [Unknown]
  - Exposure to SARS-CoV-2 [Unknown]
  - Loss of personal independence in daily activities [Unknown]
  - Dysphonia [Unknown]
  - Product dose omission issue [Unknown]
  - Intentional device misuse [Recovered/Resolved]
  - Device malfunction [Unknown]

NARRATIVE: CASE EVENT DATE: 20220430
